FAERS Safety Report 11249311 (Version 1)
Quarter: 2015Q3

REPORT INFORMATION
  Report Type: Spontaneous
  Country: US (occurrence: US)
  Receive Date: 20150708
  Receipt Date: 20150708
  Transmission Date: 20151125
  Serious: No
  Sender: FDA-Public Use
  Company Number: US-ELI_LILLY_AND_COMPANY-US201001000686

PATIENT
  Age: 72 Year
  Sex: Female
  Weight: 56.24 kg

DRUGS (2)
  1. ALIMTA [Suspect]
     Active Substance: PEMETREXED DISODIUM
     Dosage: 800 MG, UNK
     Route: 042
     Dates: start: 20100104
  2. ALIMTA [Suspect]
     Active Substance: PEMETREXED DISODIUM
     Indication: MESOTHELIOMA MALIGNANT RECURRENT
     Dosage: 800 MG, UNK
     Route: 042
     Dates: start: 20091209

REACTIONS (2)
  - Venipuncture [Unknown]
  - Dehydration [Unknown]

NARRATIVE: CASE EVENT DATE: 20091230
